FAERS Safety Report 6566637-9 (Version None)
Quarter: 2010Q1

REPORT INFORMATION
  Report Type: 
  Country: None (occurrence: None)
  Receive Date: 20100202
  Receipt Date: 20100127
  Transmission Date: 20100710
  Serious: Yes (Hospitalization)
  Sender: FDA-Public Use
  Company Number: FR-ROCHE-679905

PATIENT
  Sex: Female

DRUGS (1)
  1. BEVACIZUMAB [Suspect]
     Indication: HEPATIC ARTERIOVENOUS MALFORMATION
     Dosage: LAST DOSE PRIOR TO EVENT ON 22 MAY 2009
     Route: 042
     Dates: start: 20090312

REACTIONS (1)
  - ATRIAL FIBRILLATION [None]
